FAERS Safety Report 14628256 (Version 1)
Quarter: 2018Q1

REPORT INFORMATION
  Report Type: Spontaneous
  Country: US (occurrence: US)
  Receive Date: 20180312
  Receipt Date: 20180312
  Transmission Date: 20180509
  Serious: No
  Sender: FDA-Public Use
  Company Number: US-ALLERGAN-1763812US

PATIENT
  Age: 8 Decade
  Sex: Female
  Weight: 68.27 kg

DRUGS (4)
  1. ESTRACE [Suspect]
     Active Substance: ESTRADIOL
     Dosage: 1 G, BI-WEEKLY
     Route: 067
     Dates: start: 20171102
  2. ESTRACE [Suspect]
     Active Substance: ESTRADIOL
     Dosage: 1 G, UNK
     Route: 067
     Dates: start: 20170912
  3. ESTRACE [Suspect]
     Active Substance: ESTRADIOL
     Dosage: 1 G, UNK
     Route: 067
  4. ESTRACE [Suspect]
     Active Substance: ESTRADIOL
     Indication: ATROPHIC VULVOVAGINITIS
     Dosage: 1 G, QD
     Route: 067
     Dates: start: 201708

REACTIONS (7)
  - Photophobia [Not Recovered/Not Resolved]
  - Angina pectoris [Not Recovered/Not Resolved]
  - Hyperacusis [Not Recovered/Not Resolved]
  - Irritability [Not Recovered/Not Resolved]
  - Breast tenderness [Not Recovered/Not Resolved]
  - Myalgia [Not Recovered/Not Resolved]
  - Blood pressure increased [Not Recovered/Not Resolved]

NARRATIVE: CASE EVENT DATE: 20170912
